FAERS Safety Report 20339490 (Version 6)
Quarter: 2023Q2

REPORT INFORMATION
  Report Type: Spontaneous
  Country: US (occurrence: US)
  Receive Date: 20220117
  Receipt Date: 20230629
  Transmission Date: 20230722
  Serious: Yes (Other)
  Sender: FDA-Public Use
  Company Number: US-Blueprint Medicines Corporation-SP-US-2021-002663

PATIENT
  Age: 58 Year
  Sex: Male
  Weight: 93.4 kg

DRUGS (55)
  1. AYVAKIT [Suspect]
     Active Substance: AVAPRITINIB
     Indication: Systemic mastocytosis
     Route: 048
     Dates: start: 20211130, end: 202112
  2. AYVAKIT [Suspect]
     Active Substance: AVAPRITINIB
     Route: 048
     Dates: start: 20220127
  3. AYVAKIT [Suspect]
     Active Substance: AVAPRITINIB
     Route: 048
     Dates: start: 20220216, end: 20220228
  4. AYVAKIT [Suspect]
     Active Substance: AVAPRITINIB
     Route: 048
     Dates: start: 20220316
  5. AYVAKIT [Suspect]
     Active Substance: AVAPRITINIB
     Route: 048
     Dates: start: 20211130
  6. AYVAKIT [Suspect]
     Active Substance: AVAPRITINIB
     Route: 065
     Dates: start: 20211130
  7. PROTONIX [Concomitant]
     Active Substance: PANTOPRAZOLE SODIUM
     Indication: Product used for unknown indication
     Route: 048
  8. CLARITIN [Concomitant]
     Active Substance: LORATADINE
     Indication: Product used for unknown indication
     Route: 048
  9. CLARITIN [Concomitant]
     Active Substance: LORATADINE
     Route: 048
  10. PEPCID [Concomitant]
     Active Substance: FAMOTIDINE
     Indication: Product used for unknown indication
     Route: 048
  11. PEPCID [Concomitant]
     Active Substance: FAMOTIDINE
     Route: 048
  12. Multivitamin mens po [Concomitant]
     Indication: Product used for unknown indication
     Route: 065
  13. Multivitamin mens po [Concomitant]
     Route: 048
  14. Multivitamin mens po [Concomitant]
     Route: 048
  15. FISH OIL [Concomitant]
     Active Substance: FISH OIL
     Indication: Pruritus
     Route: 048
  16. FISH OIL [Concomitant]
     Active Substance: FISH OIL
     Indication: Product used for unknown indication
     Route: 048
  17. FISH OIL [Concomitant]
     Active Substance: FISH OIL
     Route: 048
  18. FISH OIL [Concomitant]
     Active Substance: FISH OIL
     Route: 048
  19. FISH OIL [Concomitant]
     Active Substance: FISH OIL
     Route: 048
  20. FISH OIL [Concomitant]
     Active Substance: FISH OIL
     Route: 048
  21. VITAMIN D3 [Concomitant]
     Active Substance: CHOLECALCIFEROL
     Indication: Pruritus
     Route: 048
  22. VITAMIN D3 [Concomitant]
     Active Substance: CHOLECALCIFEROL
     Indication: Product used for unknown indication
     Route: 048
  23. VITAMIN D3 [Concomitant]
     Active Substance: CHOLECALCIFEROL
     Route: 048
  24. VITAMIN D3 [Concomitant]
     Active Substance: CHOLECALCIFEROL
     Route: 048
  25. VITAMIN D3 [Concomitant]
     Active Substance: CHOLECALCIFEROL
     Route: 048
  26. VITAMIN D3 [Concomitant]
     Active Substance: CHOLECALCIFEROL
     Route: 048
  27. VIAGRA [Concomitant]
     Active Substance: SILDENAFIL CITRATE
     Indication: Erectile dysfunction
     Route: 048
  28. VIAGRA [Concomitant]
     Active Substance: SILDENAFIL CITRATE
     Route: 048
  29. VIAGRA [Concomitant]
     Active Substance: SILDENAFIL CITRATE
     Route: 048
  30. VIAGRA [Concomitant]
     Active Substance: SILDENAFIL CITRATE
     Route: 048
  31. VIAGRA [Concomitant]
     Active Substance: SILDENAFIL CITRATE
     Route: 048
  32. BIOTIN [Concomitant]
     Active Substance: BIOTIN
     Indication: Product used for unknown indication
     Route: 048
  33. BIOTIN [Concomitant]
     Active Substance: BIOTIN
     Indication: Product used for unknown indication
     Route: 048
  34. BIOTIN [Concomitant]
     Active Substance: BIOTIN
     Route: 048
  35. BIOTIN [Concomitant]
     Active Substance: BIOTIN
     Route: 048
  36. BIOTIN [Concomitant]
     Active Substance: BIOTIN
     Route: 048
  37. BIOTIN [Concomitant]
     Active Substance: BIOTIN
     Route: 048
  38. ECOTRIN [Concomitant]
     Active Substance: ASPIRIN
     Indication: Product used for unknown indication
     Route: 048
  39. ECOTRIN [Concomitant]
     Active Substance: ASPIRIN
     Indication: Product used for unknown indication
     Route: 048
  40. ECOTRIN [Concomitant]
     Active Substance: ASPIRIN
     Route: 048
  41. ECOTRIN [Concomitant]
     Active Substance: ASPIRIN
     Route: 048
  42. ECOTRIN [Concomitant]
     Active Substance: ASPIRIN
     Route: 048
  43. ECOTRIN [Concomitant]
     Active Substance: ASPIRIN
     Route: 048
  44. GASTROCROM [Concomitant]
     Active Substance: CROMOLYN SODIUM
     Indication: Product used for unknown indication
     Dosage: (200MG) (10 ML,4 TIMES DAILY BEFORE MEALS AND NIGHTLY)
     Route: 048
  45. GASTROCROM [Concomitant]
     Active Substance: CROMOLYN SODIUM
     Indication: Product used for unknown indication
     Route: 048
  46. GASTROCROM [Concomitant]
     Active Substance: CROMOLYN SODIUM
     Route: 048
  47. GASTROCROM [Concomitant]
     Active Substance: CROMOLYN SODIUM
     Route: 048
  48. GASTROCROM [Concomitant]
     Active Substance: CROMOLYN SODIUM
     Route: 048
  49. GASTROCROM [Concomitant]
     Active Substance: CROMOLYN SODIUM
     Route: 048
  50. DIPHENHYDRAMINE [Concomitant]
     Active Substance: DIPHENHYDRAMINE
     Indication: Pruritus
     Dosage: 25 MG,EVERY 8 HOURS AS NEEDED
     Route: 048
  51. DIPHENHYDRAMINE [Concomitant]
     Active Substance: DIPHENHYDRAMINE
     Indication: Product used for unknown indication
     Route: 048
  52. DIPHENHYDRAMINE [Concomitant]
     Active Substance: DIPHENHYDRAMINE
     Route: 048
  53. DIPHENHYDRAMINE [Concomitant]
     Active Substance: DIPHENHYDRAMINE
     Route: 048
  54. DIPHENHYDRAMINE [Concomitant]
     Active Substance: DIPHENHYDRAMINE
     Route: 048
  55. DIPHENHYDRAMINE [Concomitant]
     Active Substance: DIPHENHYDRAMINE
     Route: 048

REACTIONS (6)
  - Thrombocytopenia [Unknown]
  - Tryptase increased [Not Recovered/Not Resolved]
  - Laboratory test abnormal [Unknown]
  - Red blood cell count decreased [Unknown]
  - Cough [Unknown]
  - Dyspnoea [Unknown]

NARRATIVE: CASE EVENT DATE: 20211216
